FAERS Safety Report 8183912-5 (Version None)
Quarter: 2012Q1

REPORT INFORMATION
  Report Type: 
  Country: None (occurrence: None)
  Receive Date: 20120305
  Receipt Date: 20120301
  Transmission Date: 20120608
  Serious: Yes (Other)
  Sender: FDA-Public Use
  Company Number: DE-ROCHE-1044981

PATIENT
  Sex: Male
  Weight: 72 kg

DRUGS (7)
  1. ASPIRIN [Concomitant]
     Route: 048
  2. ACTEMRA [Suspect]
     Indication: POLYARTHRITIS
     Route: 042
  3. RAMIPRIL [Concomitant]
     Indication: HYPERTENSION
     Route: 048
  4. TORSEMIDE [Concomitant]
     Indication: POLYURIA
     Route: 048
  5. PREDNISOLONE [Concomitant]
     Indication: POLYARTHRITIS
     Route: 048
  6. IBUPROFEN [Concomitant]
     Indication: POLYARTHRITIS
     Route: 048
  7. IBUPROFEN [Concomitant]
     Indication: PAIN

REACTIONS (2)
  - CHILLS [None]
  - BLOOD PRESSURE DECREASED [None]
